FAERS Safety Report 7260269-5 (Version None)
Quarter: 2011Q1

REPORT INFORMATION
  Report Type: 
  Country: None (occurrence: None)
  Receive Date: 20110130
  Receipt Date: 20100907
  Transmission Date: 20110831
  Serious: No
  Sender: FDA-Public Use
  Company Number: US-ABBOTT-10P-163-0670087-00

PATIENT
  Sex: Female
  Weight: 68.1 kg

DRUGS (8)
  1. SULFASALAZINE [Concomitant]
     Indication: PSORIATIC ARTHROPATHY
  2. FUROSEMIDE [Concomitant]
     Indication: PRODUCT USED FOR UNKNOWN INDICATION
  3. HUMIRA [Suspect]
     Indication: PSORIATIC ARTHROPATHY
     Dates: start: 20070101
  4. FOLIC ACID [Concomitant]
     Indication: PRODUCT USED FOR UNKNOWN INDICATION
  5. LISINOPRIL [Concomitant]
     Indication: HYPERTENSION
  6. PREDNISONE [Concomitant]
     Indication: PSORIATIC ARTHROPATHY
  7. LEVOXYL [Concomitant]
     Indication: HYPOTHYROIDISM
  8. NABUMETONE [Concomitant]
     Indication: PSORIATIC ARTHROPATHY

REACTIONS (6)
  - SINUSITIS [None]
  - PYREXIA [None]
  - TOOTHACHE [None]
  - TOOTH ABSCESS [None]
  - EAR INFECTION [None]
  - SWELLING FACE [None]
